FAERS Safety Report 9494162 (Version 3)
Quarter: 2013Q3

REPORT INFORMATION
  Report Type: Report from Study
  Country: AU (occurrence: AU)
  Receive Date: 20130903
  Receipt Date: 20130918
  Transmission Date: 20140515
  Serious: Yes (Other)
  Sender: FDA-Public Use
  Company Number: PHHY2013AU055792

PATIENT
  Age: 44 Year
  Sex: Female

DRUGS (2)
  1. GILENYA [Suspect]
     Indication: MULTIPLE SCLEROSIS
     Dosage: 0.5 MG, DAILY
     Route: 048
     Dates: start: 201303, end: 201308
  2. ANALGESICS [Concomitant]
     Indication: PAIN

REACTIONS (5)
  - Mouth ulceration [Recovering/Resolving]
  - Headache [Recovering/Resolving]
  - Alopecia [Recovering/Resolving]
  - Liver function test abnormal [Recovering/Resolving]
  - White blood cell count decreased [Recovering/Resolving]
